FAERS Safety Report 14869421 (Version 1)
Quarter: 2018Q2

REPORT INFORMATION
  Report Type: Spontaneous
  Country: US (occurrence: US)
  Receive Date: 20180423
  Receipt Date: 20180423
  Transmission Date: 20180711
  Serious: No
  Sender: FDA-Public Use
  Company Number: None

PATIENT
  Age: 32 Year
  Sex: Male

DRUGS (2)
  1. CEFTRIAXONE 2GM VIAL APOTEX [Suspect]
     Active Substance: CEFTRIAXONE
     Indication: GRANULOMA
     Route: 042
     Dates: start: 20180228, end: 20180415
  2. CEFTRIAXONE 2GM VIAL APOTEX [Suspect]
     Active Substance: CEFTRIAXONE
     Indication: BRAIN ABSCESS
     Route: 042
     Dates: start: 20180228, end: 20180415

REACTIONS (1)
  - Rash pruritic [None]

NARRATIVE: CASE EVENT DATE: 20180415
